FAERS Safety Report 6417963-5 (Version None)
Quarter: 2009Q4

REPORT INFORMATION
  Report Type: 
  Country: None (occurrence: None)
  Receive Date: 20091026
  Receipt Date: 20091013
  Transmission Date: 20100525
  Serious: Yes (Disabling)
  Sender: FDA-Public Use
  Company Number: ADR38752009

PATIENT
  Age: 60 Year
  Sex: Male

DRUGS (2)
  1. SIMVASTATIN [Suspect]
     Dosage: 40 MG, ORAL
  2. ALFUZOSIN (10 MG) [Concomitant]

REACTIONS (2)
  - PERINEAL PAIN [None]
  - PROSTATISM [None]
